FAERS Safety Report 10099685 (Version 1)
Quarter: 2014Q2

REPORT INFORMATION
  Report Type: Spontaneous
  Country: US (occurrence: US)
  Receive Date: 20140423
  Receipt Date: 20140423
  Transmission Date: 20141212
  Serious: No
  Sender: FDA-Public Use
  Company Number: US-GILEAD-2013-0071236

PATIENT
  Sex: Male

DRUGS (8)
  1. LETAIRIS [Suspect]
     Indication: PRODUCT USED FOR UNKNOWN INDICATION
     Dosage: 5 MG, QD
     Dates: start: 20120808, end: 201302
  2. SAW PALMETTO                       /00833501/ [Concomitant]
  3. LORTAB                             /00607101/ [Concomitant]
  4. IBUPROFEN [Concomitant]
  5. ASPIRIN [Concomitant]
  6. FISH OIL [Concomitant]
  7. LASIX                              /00032601/ [Concomitant]
  8. REVATIO [Concomitant]

REACTIONS (1)
  - Condition aggravated [Unknown]
